FAERS Safety Report 15247145 (Version 1)
Quarter: 2018Q3

REPORT INFORMATION
  Report Type: Spontaneous
  Country: US (occurrence: US)
  Receive Date: 20180807
  Receipt Date: 20180807
  Transmission Date: 20181010
  Serious: Yes (Hospitalization, Other)
  Sender: FDA-Public Use
  Company Number: US-AUROBINDO-AUR-APL-2018-038141

PATIENT
  Age: 60 Year
  Sex: Male

DRUGS (1)
  1. AMIODARONE HYDROCHLORIDE. [Suspect]
     Active Substance: AMIODARONE HYDROCHLORIDE
     Indication: ATRIAL TACHYCARDIA
     Route: 065

REACTIONS (2)
  - Organising pneumonia [Recovering/Resolving]
  - Pulmonary toxicity [Recovering/Resolving]
